FAERS Safety Report 5266260-2 (Version None)
Quarter: 2007Q1

REPORT INFORMATION
  Report Type: 
  Country: None (occurrence: None)
  Receive Date: 20070315
  Receipt Date: 20070306
  Transmission Date: 20070707
  Serious: Yes (Other)
  Sender: FDA-Public Use
  Company Number: US-MERCK-0703USA00827

PATIENT
  Age: 43 Year
  Sex: Male

DRUGS (5)
  1. VYTORIN [Suspect]
     Indication: BLOOD CHOLESTEROL INCREASED
     Route: 048
     Dates: start: 20060101
  2. NEXIUM [Concomitant]
     Route: 065
  3. CLARINEX [Concomitant]
     Route: 065
  4. TOPROL-XL [Concomitant]
     Route: 065
     Dates: start: 20061201
  5. ASPIRIN [Concomitant]
     Route: 065

REACTIONS (5)
  - EPISTAXIS [None]
  - MYALGIA [None]
  - MYOCARDIAL INFARCTION [None]
  - PRURITUS [None]
  - URTICARIA [None]
